FAERS Safety Report 10526527 (Version 3)
Quarter: 2014Q4

REPORT INFORMATION
  Report Type: Spontaneous
  Country: US (occurrence: US)
  Receive Date: 20141020
  Receipt Date: 20141103
  Transmission Date: 20150528
  Serious: Yes (Hospitalization, Other)
  Sender: FDA-Public Use
  Company Number: US-UNITED THERAPEUTICS-UNT-2014-006924

PATIENT
  Age: 79 Year
  Sex: Female
  Weight: 138.78 kg

DRUGS (8)
  1. ORENITRAM [Suspect]
     Active Substance: TREPROSTINIL
     Dosage: 1 MG, BID
     Route: 048
     Dates: start: 20140912
  2. ADCIRCA [Concomitant]
     Active Substance: TADALAFIL
     Indication: PRODUCT USED FOR UNKNOWN INDICATION
     Dosage: UNK
  3. ORENITRAM [Suspect]
     Active Substance: TREPROSTINIL
     Indication: PULMONARY ARTERIAL HYPERTENSION
     Dosage: 1 MG, BID
     Route: 048
     Dates: start: 20140820, end: 20140905
  4. ORENITRAM [Suspect]
     Active Substance: TREPROSTINIL
     Dosage: 0.25 MG, BID
     Route: 048
     Dates: start: 20140821
  5. ORENITRAM [Suspect]
     Active Substance: TREPROSTINIL
     Dosage: 0.75 MG, UNK
     Dates: start: 2014
  6. ORENITRAM [Suspect]
     Active Substance: TREPROSTINIL
     Dosage: 0.75 MG, BID
     Route: 048
     Dates: start: 20140821
  7. ORENITRAM [Suspect]
     Active Substance: TREPROSTINIL
     Dosage: 2 UNK, UNK
     Dates: start: 2014
  8. ORENITRAM [Suspect]
     Active Substance: TREPROSTINIL
     Dosage: 1 MG, BID
     Route: 048
     Dates: start: 20140821

REACTIONS (8)
  - Flushing [Recovered/Resolved]
  - Palpitations [Recovered/Resolved]
  - Tremor [Recovered/Resolved]
  - Heart rate abnormal [Recovered/Resolved]
  - Joint injury [Recovered/Resolved]
  - Cerebrovascular accident [Recovered/Resolved]
  - Drug intolerance [Recovered/Resolved]
  - Headache [Recovered/Resolved]

NARRATIVE: CASE EVENT DATE: 2014
